FAERS Safety Report 9132679 (Version 7)
Quarter: 2013Q3

REPORT INFORMATION
  Report Type: Spontaneous
  Country: US (occurrence: US)
  Receive Date: 20130301
  Receipt Date: 20130909
  Transmission Date: 20140515
  Serious: Yes (Hospitalization, Other)
  Sender: FDA-Public Use
  Company Number: US-009507513-1302USA013564

PATIENT
  Sex: Female
  Weight: 92.52 kg

DRUGS (2)
  1. NUVARING [Suspect]
     Indication: CONTRACEPTION
     Dosage: 1 RING 3 WEEKS/ 1 WEEK NO RING
     Route: 067
     Dates: start: 200702, end: 20080402
  2. NUVARING [Suspect]
     Dosage: UNK
     Route: 067
     Dates: start: 20091019, end: 201002

REACTIONS (28)
  - Abortion spontaneous [Unknown]
  - Cerebral venous thrombosis [Recovered/Resolved]
  - Maternal exposure before pregnancy [Unknown]
  - Benign intracranial hypertension [Not Recovered/Not Resolved]
  - Panic attack [Unknown]
  - Fracture [Unknown]
  - Generalised anxiety disorder [Unknown]
  - Streptococcal infection [Unknown]
  - Anaemia of pregnancy [Unknown]
  - Depression [Unknown]
  - Eating disorder [Unknown]
  - Chest pain [Unknown]
  - Pain in extremity [Unknown]
  - Oedema peripheral [Unknown]
  - Asthenia [Unknown]
  - Cerebrovascular accident [Unknown]
  - Anaemia [Unknown]
  - Nephrolithiasis [Unknown]
  - Pyelonephritis [Unknown]
  - Urinary tract infection [Unknown]
  - Post lumbar puncture syndrome [Unknown]
  - Pain [Unknown]
  - Muscular weakness [Unknown]
  - Dysphemia [Unknown]
  - Intervertebral disc protrusion [Unknown]
  - Lumbar puncture [Unknown]
  - Lumbar puncture [Unknown]
  - Lumbar puncture [Unknown]
